FAERS Safety Report 20136482 (Version 6)
Quarter: 2024Q4

REPORT INFORMATION
  Report Type: Report from Study
  Country: ES (occurrence: ES)
  Receive Date: 20211201
  Receipt Date: 20241119
  Transmission Date: 20250114
  Serious: Yes (Hospitalization, Other)
  Sender: TAKEDA
  Company Number: ES-TAKEDA-2021TUS073968

PATIENT
  Age: 1 Year
  Sex: Male

DRUGS (16)
  1. TEDUGLUTIDE [Suspect]
     Active Substance: TEDUGLUTIDE
     Indication: Short-bowel syndrome
     Dosage: 0.4 MILLIGRAM, QD
     Dates: start: 20201106, end: 20210207
  2. TEDUGLUTIDE [Suspect]
     Active Substance: TEDUGLUTIDE
     Dosage: 0.4 MILLIGRAM, QD
     Dates: start: 20210207, end: 20210515
  3. TEDUGLUTIDE [Suspect]
     Active Substance: TEDUGLUTIDE
  4. TEDUGLUTIDE [Suspect]
     Active Substance: TEDUGLUTIDE
  5. SULFAMETHOXAZOLE\TRIMETHOPRIM [Concomitant]
     Active Substance: SULFAMETHOXAZOLE\TRIMETHOPRIM
     Indication: Post procedural discomfort
     Dosage: 3 MILLILITER, BID
     Dates: start: 20210702
  6. SULFAMETHOXAZOLE\TRIMETHOPRIM [Concomitant]
     Active Substance: SULFAMETHOXAZOLE\TRIMETHOPRIM
     Dosage: 4 MILLILITER, TID
     Dates: start: 20220304
  7. BEMIPARIN SODIUM [Concomitant]
     Active Substance: BEMIPARIN SODIUM
     Dosage: 850 INTERNATIONAL UNIT, QD
     Dates: start: 20210702
  8. PREDNISOLONE STEAGLATE [Concomitant]
     Active Substance: PREDNISOLONE STEAGLATE
     Indication: Multivisceral transplantation
     Dosage: 0.70 MILLILITER, QD
     Dates: start: 20210715
  9. PREDNISOLONE STEAGLATE [Concomitant]
     Active Substance: PREDNISOLONE STEAGLATE
     Dosage: 1.5 MILLILITER, QD
     Dates: start: 20210702, end: 20210715
  10. ARGENPAL [Concomitant]
     Indication: Stoma site haemorrhage
     Dosage: UNK
     Route: 061
  11. TACROLIMUS [Concomitant]
     Active Substance: TACROLIMUS
     Indication: Post procedural discomfort
     Dosage: 4.4 MILLIGRAM, BID
     Dates: start: 20220420
  12. VITAMIN D3 [Concomitant]
     Active Substance: CHOLECALCIFEROL
     Indication: Vitamin D deficiency
     Dosage: 6 GTT DROPS, QD
     Dates: start: 20220420
  13. RUXOLITINIB [Concomitant]
     Active Substance: RUXOLITINIB
     Indication: Haemophagocytic lymphohistiocytosis
     Dosage: 2.50 MILLIGRAM, BID
     Dates: start: 20240411
  14. Paidocort [Concomitant]
     Indication: Prophylaxis against transplant rejection
     Dosage: 15 MILLIGRAM, QD
     Dates: start: 20240411, end: 20240429
  15. Paidocort [Concomitant]
     Dosage: 24 MILLIGRAM, QD
     Dates: start: 20240429
  16. RAPAMUNE [Concomitant]
     Active Substance: SIROLIMUS
     Indication: Prophylaxis against transplant rejection
     Dosage: 4 MILLIGRAM, QD
     Dates: start: 20240424

REACTIONS (3)
  - Wound evisceration [Recovered/Resolved]
  - Functional gastrointestinal disorder [Recovered/Resolved]
  - Intestinal obstruction [Recovered/Resolved]

NARRATIVE: CASE EVENT DATE: 20210514
